FAERS Safety Report 24578481 (Version 2)
Quarter: 2024Q4

REPORT INFORMATION
  Report Type: Spontaneous
  Country: BR (occurrence: AU)
  Receive Date: 20241105
  Receipt Date: 20241230
  Transmission Date: 20250115
  Serious: Yes (Other)
  Sender: ORGANON
  Company Number: BR-ORGANON-O2411BRA000070

PATIENT
  Sex: Female

DRUGS (1)
  1. ETONOGESTREL [Suspect]
     Active Substance: ETONOGESTREL
     Dosage: 1 IMPLANT
     Route: 065

REACTIONS (3)
  - Device embolisation [Not Recovered/Not Resolved]
  - Device placement issue [Not Recovered/Not Resolved]
  - Complication of device removal [Not Recovered/Not Resolved]
